FAERS Safety Report 6130540-9 (Version None)
Quarter: 2009Q1

REPORT INFORMATION
  Report Type: 
  Country: None (occurrence: None)
  Receive Date: 20090323
  Receipt Date: 20090314
  Transmission Date: 20090719
  Serious: Yes (Hospitalization)
  Sender: FDA-Public Use
  Company Number: 2009SP005659

PATIENT
  Age: 51 Year
  Sex: Male
  Weight: 83.0083 kg

DRUGS (8)
  1. BOCEPREVIR [Suspect]
     Indication: HEPATITIS C
     Dosage: 800 MCG; TID; PO
     Route: 048
     Dates: start: 20081216, end: 20090313
  2. BOCEPREVIR [Suspect]
     Indication: HEPATITIS C
     Dosage: 800 MCG; TID; PO
     Route: 048
     Dates: start: 20090314
  3. PEG-INTRON [Suspect]
     Indication: HEPATITIS C
     Dosage: 120 MCG; QW; SC
     Route: 058
     Dates: start: 20081216
  4. RIBAVIRIN [Suspect]
     Indication: HEPATITIS C
     Dosage: 600MG; BID; PO
     Route: 048
     Dates: start: 20081216, end: 20090313
  5. RIBAVIRIN [Suspect]
     Indication: HEPATITIS C
     Dosage: 600MG; BID; PO
     Route: 048
     Dates: start: 20090314
  6. IBUPROFEN [Suspect]
     Indication: HEADACHE
     Dosage: 200 MG; PRN; PO
     Route: 048
     Dates: start: 20081217
  7. IBUPROFEN [Suspect]
     Indication: INFLUENZA LIKE ILLNESS
     Dosage: 200 MG; PRN; PO
     Route: 048
     Dates: start: 20081217
  8. NEXIUM [Concomitant]

REACTIONS (4)
  - EROSIVE OESOPHAGITIS [None]
  - GASTRITIS EROSIVE [None]
  - HAEMOGLOBIN DECREASED [None]
  - SPUTUM DISCOLOURED [None]
